FAERS Safety Report 5083595-7 (Version None)
Quarter: 2006Q3

REPORT INFORMATION
  Report Type: 
  Country: None (occurrence: None)
  Receive Date: 20060818
  Receipt Date: 20060718
  Transmission Date: 20061208
  Serious: Yes (Death, Hospitalization)
  Sender: FDA-Public Use
  Company Number: FR-GLAXOSMITHKLINE-B0431780A

PATIENT
  Age: 56 Year
  Sex: Female
  Weight: 63 kg

DRUGS (10)
  1. ARIXTRA [Suspect]
     Indication: SUPERIOR VENA CAVAL OCCLUSION
     Dosage: 7.5MG PER DAY
     Route: 058
     Dates: start: 20060713, end: 20060717
  2. ZOPHREN [Concomitant]
     Dates: start: 20060712, end: 20060712
  3. NAVELBINE [Concomitant]
     Dosage: 40MG PER DAY
     Route: 042
     Dates: start: 20060705, end: 20060712
  4. SOLU-MEDROL [Concomitant]
     Dates: start: 20060712, end: 20060712
  5. TARDYFERON [Concomitant]
     Indication: ANAEMIA
     Dosage: 160MG PER DAY
     Route: 048
     Dates: start: 20060713, end: 20060720
  6. ARANESP [Concomitant]
     Indication: ANAEMIA
     Dosage: 500MCG SEE DOSAGE TEXT
     Route: 058
     Dates: start: 20060713, end: 20060713
  7. PROZAC [Concomitant]
     Indication: DEPRESSION
     Dosage: 1TAB PER DAY
     Route: 048
     Dates: end: 20060717
  8. NOCTRAN [Concomitant]
     Indication: INSOMNIA
     Dosage: .5TAB PER DAY
     Route: 048
     Dates: end: 20060717
  9. LEXOMIL [Concomitant]
     Indication: ANXIETY
     Dosage: .5TAB PER DAY
     Route: 048
     Dates: end: 20060717
  10. CORTANCYL [Concomitant]
     Indication: SUPERIOR VENA CAVAL OCCLUSION
     Dosage: 40MG PER DAY
     Route: 048
     Dates: start: 20060713, end: 20060722

REACTIONS (11)
  - ANOREXIA [None]
  - BLOOD BILIRUBIN INCREASED [None]
  - CONFUSIONAL STATE [None]
  - HEPATITIS ACUTE [None]
  - HEPATITIS CHOLESTATIC [None]
  - HEPATITIS FULMINANT [None]
  - JAUNDICE [None]
  - NAUSEA [None]
  - PROTHROMBIN LEVEL DECREASED [None]
  - RESPIRATORY FAILURE [None]
  - TRANSAMINASES INCREASED [None]
